FAERS Safety Report 8803017 (Version 1)
Quarter: 2012Q4

REPORT INFORMATION
  Report Type: Report from Study
  Country: US (occurrence: US)
  Receive Date: 20120924
  Receipt Date: 20120924
  Transmission Date: 20130627
  Serious: Yes (Hospitalization, Other)
  Sender: FDA-Public Use
  Company Number: US-JNJFOC-20120906242

PATIENT
  Age: 42 None
  Sex: Female
  Weight: 66.23 kg

DRUGS (6)
  1. REMICADE [Suspect]
     Indication: CROHN^S DISEASE
     Route: 042
     Dates: start: 201205
  2. ESCITALOPRAM OXALATE [Concomitant]
     Indication: DEPRESSION
     Route: 048
  3. VALTREX [Concomitant]
     Route: 048
  4. NEXIUM [Concomitant]
     Route: 048
  5. OMEPRAZOLE [Concomitant]
     Route: 048
  6. MICROGESTIN [Concomitant]
     Indication: MENOPAUSE
     Route: 048
     Dates: start: 201204

REACTIONS (6)
  - Crohn^s disease [Recovered/Resolved]
  - Depression [Not Recovered/Not Resolved]
  - Tooth disorder [Unknown]
  - Post procedural infection [Recovering/Resolving]
  - Infection [Recovering/Resolving]
  - Eye swelling [Unknown]
